FAERS Safety Report 9323954 (Version 1)
Quarter: 2013Q2

REPORT INFORMATION
  Report Type: Spontaneous
  Country: RU (occurrence: RU)
  Receive Date: 20130603
  Receipt Date: 20130603
  Transmission Date: 20140414
  Serious: Yes (Other)
  Sender: FDA-Public Use
  Company Number: RU-BAYER-2013-045244

PATIENT
  Sex: Female

DRUGS (2)
  1. QLAIRA [Suspect]
     Dosage: UNK
  2. QLAIRA [Suspect]
     Dosage: UNK

REACTIONS (3)
  - Pain in extremity [Recovered/Resolved]
  - Haemorrhage [None]
  - Oedema peripheral [None]
